FAERS Safety Report 9476156 (Version 1)
Quarter: 2013Q3

REPORT INFORMATION
  Report Type: Spontaneous
  Country: IT (occurrence: None)
  Receive Date: 20130821
  Receipt Date: 20130821
  Transmission Date: 20140515
  Serious: Yes (Other)
  Sender: FDA-Public Use
  Company Number: FK201303392

PATIENT
  Age: 50 Year
  Sex: Female
  Weight: 76 kg

DRUGS (5)
  1. IRINOTECAN [Suspect]
     Indication: COLON CANCER
     Dosage: CYCLICAL INTRAVENOUS
     Dates: start: 20130711, end: 20130711
  2. ATROPINE [Suspect]
     Indication: COLON CANCER
     Dosage: CYCLICAL
     Route: 058
     Dates: start: 20130711, end: 20130711
  3. RANIDIL (RANITIDINE HYDROCHLORIDE) [Concomitant]
  4. ZOFRAN (ONDANSETRON) [Concomitant]
  5. SOLDESAM (DEXAMEHASONE SODIUM PHOSPHATE) [Concomitant]

REACTIONS (5)
  - Diarrhoea [None]
  - Hyperhidrosis [None]
  - Hypertension [None]
  - Pruritus [None]
  - Vomiting [None]
